FAERS Safety Report 5927321-5 (Version None)
Quarter: 2008Q4

REPORT INFORMATION
  Report Type: 
  Country: None (occurrence: None)
  Receive Date: 20081017
  Receipt Date: 20081006
  Transmission Date: 20090506
  Serious: No
  Sender: FDA-Public Use
  Company Number: 004664

PATIENT
  Age: 11 Year
  Sex: Male

DRUGS (4)
  1. BUSULFEX [Suspect]
     Indication: STEM CELL TRANSPLANT
     Dosage: 0.8 MG/KG, QID INTRAVENOUS
     Route: 042
     Dates: start: 20070701, end: 20070701
  2. CYCLOPHOSPHAMIDE [Concomitant]
  3. MELPHALAN (MELPHALAN) [Concomitant]
  4. CYCLOSPORINE [Concomitant]

REACTIONS (8)
  - BLOOD CREATININE INCREASED [None]
  - CYSTITIS HAEMORRHAGIC [None]
  - HAEMATURIA [None]
  - HUMAN POLYOMAVIRUS INFECTION [None]
  - POST PROCEDURAL COMPLICATION [None]
  - PROTEINURIA [None]
  - RENAL FAILURE [None]
  - TUBULOINTERSTITIAL NEPHRITIS [None]
